FAERS Safety Report 5573766-5 (Version None)
Quarter: 2007Q4

REPORT INFORMATION
  Report Type: 
  Country: None (occurrence: None)
  Receive Date: 20071226
  Receipt Date: 20071218
  Transmission Date: 20080405
  Serious: Yes (Other)
  Sender: FDA-Public Use
  Company Number: US-ASTRAZENECA-2007UW28389

PATIENT
  Age: 33 Year
  Sex: Male
  Weight: 39.8 kg

DRUGS (7)
  1. SYMBICORT [Suspect]
     Indication: ASTHMA
     Dosage: 160/4.5 UG - 2 INHALATIONS BID
     Route: 055
     Dates: start: 20071001
  2. FLOVENT [Concomitant]
  3. SPIRIVA [Concomitant]
  4. NASONEX [Concomitant]
  5. PROTONIX [Concomitant]
  6. ZOCOR [Concomitant]
  7. ALBUTEROL [Concomitant]
     Indication: ASTHMA

REACTIONS (4)
  - ASTHMA [None]
  - BRONCHITIS [None]
  - DIZZINESS [None]
  - TREMOR [None]
